FAERS Safety Report 7328276-1 (Version None)
Quarter: 2011Q1

REPORT INFORMATION
  Report Type: 
  Country: None (occurrence: None)
  Receive Date: 20110303
  Receipt Date: 20110223
  Transmission Date: 20110831
  Serious: Yes (Hospitalization, Other)
  Sender: FDA-Public Use
  Company Number: US-ASTRAZENECA-2007UW02074

PATIENT
  Age: 7509 Day
  Sex: Female
  Weight: 103.9 kg

DRUGS (18)
  1. TRILEPTAL [Concomitant]
     Route: 048
     Dates: start: 20060101
  2. RISPERDAL [Concomitant]
     Route: 048
     Dates: start: 20000101
  3. ZANTAC [Concomitant]
     Dosage: 150 MG-300 MG
     Route: 048
     Dates: start: 20040504
  4. SEROQUEL [Suspect]
     Indication: SCHIZOPHRENIA
     Dosage: 100 MG - 500 MG
     Route: 048
     Dates: start: 20010701, end: 20060301
  5. DILANTIN [Concomitant]
     Dosage: 100 MG-300 MG
     Dates: start: 20010724
  6. EFFEXOR [Concomitant]
     Dosage: 150 MG-300 MG
     Dates: start: 20030824
  7. CELEBREX [Concomitant]
     Dates: start: 20010724
  8. ZOLOFT [Concomitant]
     Dosage: 50 MG-100 MG
     Dates: start: 20010724
  9. NEXIUM [Concomitant]
     Route: 048
     Dates: start: 20020117
  10. PROVIGIL [Concomitant]
     Dates: start: 20040504
  11. SEROQUEL [Suspect]
     Route: 048
     Dates: start: 20010724
  12. REMERON [Concomitant]
     Dates: start: 20010724
  13. LISINOPRIL [Concomitant]
     Dates: start: 20060306
  14. TOPAMAX [Concomitant]
     Dosage: 25 MG-50 MG
     Dates: start: 20031119
  15. TRILEPTAL [Concomitant]
     Indication: EPILEPSY
     Dates: start: 20030824
  16. SEROQUEL [Suspect]
     Dosage: 100 MG ONE TABLET IN MORNING AND FOUR AT NIGHT
     Route: 048
     Dates: start: 20040504
  17. GLUCOPHAGE [Concomitant]
     Dosage: 500 MG HALF TABLET DAILY
     Dates: start: 20060306
  18. HYDROCHLOROTHIAZIDE [Concomitant]
     Dates: start: 20040504

REACTIONS (39)
  - CONVULSION [None]
  - HYPOGLYCAEMIA [None]
  - GASTRITIS [None]
  - GESTATIONAL HYPERTENSION [None]
  - VULVOVAGINITIS GONOCOCCAL [None]
  - PYREXIA [None]
  - PAIN [None]
  - DYSPNOEA [None]
  - PELVIC PAIN [None]
  - SUICIDAL IDEATION [None]
  - MENTAL STATUS CHANGES [None]
  - POLYCYSTIC OVARIES [None]
  - ABDOMINAL DISCOMFORT [None]
  - DEHYDRATION [None]
  - SLEEP DISORDER [None]
  - DYSFUNCTIONAL UTERINE BLEEDING [None]
  - PERSONALITY DISORDER [None]
  - ABDOMINAL PAIN [None]
  - VOMITING [None]
  - EYE IRRITATION [None]
  - TYPE 2 DIABETES MELLITUS [None]
  - BLOOD GLUCOSE INCREASED [None]
  - PAIN IN EXTREMITY [None]
  - OEDEMA PERIPHERAL [None]
  - PELVIC INFLAMMATORY DISEASE [None]
  - GASTROOESOPHAGEAL REFLUX DISEASE [None]
  - OLIGOMENORRHOEA [None]
  - DYSMENORRHOEA [None]
  - DYSPAREUNIA [None]
  - DEEP VEIN THROMBOSIS [None]
  - VAGINAL HAEMORRHAGE [None]
  - BACK PAIN [None]
  - CHEST PAIN [None]
  - ENDOMETRIOSIS [None]
  - NAUSEA [None]
  - DYSURIA [None]
  - DEPRESSED MOOD [None]
  - PREMATURE LABOUR [None]
  - BRONCHITIS [None]
